FAERS Safety Report 4704834-5 (Version None)
Quarter: 2005Q2

REPORT INFORMATION
  Report Type: 
  Country: None (occurrence: None)
  Receive Date: 20050630
  Receipt Date: 20050630
  Transmission Date: 20051028
  Serious: Yes (Other)
  Sender: FDA-Public Use
  Company Number: None

PATIENT
  Sex: Male

DRUGS (1)
  1. VORICONAZOLE     200 MG [Suspect]
     Indication: FEBRILE NEUTROPENIA
     Dosage: 200 MG   Q 12 HOURS   ORAL
     Route: 048
     Dates: start: 20050503, end: 20050506

REACTIONS (2)
  - HALLUCINATIONS, MIXED [None]
  - NIGHTMARE [None]
